FAERS Safety Report 4630378-5 (Version None)
Quarter: 2005Q2

REPORT INFORMATION
  Report Type: 
  Country: None (occurrence: None)
  Receive Date: 20050408
  Receipt Date: 20050315
  Transmission Date: 20051028
  Serious: Yes (Hospitalization, Other)
  Sender: FDA-Public Use
  Company Number: PHEH2005US03231

PATIENT
  Age: 81 Year
  Sex: Male

DRUGS (6)
  1. ZOMETA [Suspect]
     Indication: PROSTATE CANCER METASTATIC
     Dosage: EVERY MONTH OVER 20 MINUTES
     Dates: start: 20021101, end: 20040916
  2. ZOMETA [Suspect]
     Dosage: 4 MG, Q3-4 WEEKS
     Route: 042
     Dates: start: 20020828, end: 20030807
  3. VITAMINS NOS [Concomitant]
  4. CHEMOTHERAPEUTICS,OTHER [Concomitant]
  5. PREDNISONE [Concomitant]
     Indication: NEOPLASM MALIGNANT
     Dosage: 5 MG, BID
     Dates: start: 20041021
  6. LIDOCAINE [Suspect]
     Indication: SURGERY

REACTIONS (21)
  - ABSCESS [None]
  - ABSCESS DRAINAGE [None]
  - ANAEMIA [None]
  - APHAGIA [None]
  - ASEPTIC NECROSIS BONE [None]
  - BIOPSY SKIN [None]
  - BONE DISORDER [None]
  - EAR TUBE INSERTION [None]
  - EATING DISORDER [None]
  - IMPAIRED HEALING [None]
  - OEDEMA MOUTH [None]
  - OPEN WOUND [None]
  - PAIN [None]
  - PERIODONTITIS [None]
  - RADIATION INJURY [None]
  - SEQUESTRECTOMY [None]
  - SWELLING [None]
  - SWELLING FACE [None]
  - TOOTH EXTRACTION [None]
  - WEIGHT DECREASED [None]
  - WOUND DEBRIDEMENT [None]
